FAERS Safety Report 5678846-1 (Version None)
Quarter: 2008Q1

REPORT INFORMATION
  Report Type: 
  Country: None (occurrence: None)
  Receive Date: 20080324
  Receipt Date: 20080324
  Transmission Date: 20080703
  Serious: No
  Sender: FDA-Public Use
  Company Number: None

PATIENT
  Age: 55 Year
  Sex: Male

DRUGS (1)
  1. ROCEPHIN [Suspect]
     Dosage: INJECTABLE

REACTIONS (3)
  - DRUG ADMINISTRATION ERROR [None]
  - MEDICATION ERROR [None]
  - PAIN IN EXTREMITY [None]
